FAERS Safety Report 7268698-0 (Version None)
Quarter: 2011Q1

REPORT INFORMATION
  Report Type: 
  Country: None (occurrence: None)
  Receive Date: 20110121
  Receipt Date: 20110107
  Transmission Date: 20110831
  Serious: Yes (Hospitalization)
  Sender: FDA-Public Use
  Company Number: 2010SP065400

PATIENT
  Age: 25 Year
  Sex: Female
  Weight: 55.5 kg

DRUGS (3)
  1. CERAZETTE (DESOGESTREL / 00754001/ ) [Suspect]
     Indication: CONTRACEPTION
     Dates: start: 20101215, end: 20101222
  2. AMITRIPTYLINE HCL [Concomitant]
  3. THOMAPYRIN /00005201/ [Concomitant]

REACTIONS (13)
  - AFFECTIVE DISORDER [None]
  - BLOOD CHOLESTEROL INCREASED [None]
  - LOW DENSITY LIPOPROTEIN INCREASED [None]
  - ALTERED STATE OF CONSCIOUSNESS [None]
  - AMNESIA [None]
  - NYSTAGMUS [None]
  - RED BLOOD CELLS URINE POSITIVE [None]
  - HYPERVENTILATION [None]
  - HEADACHE [None]
  - VENTRICULAR EXTRASYSTOLES [None]
  - SUPRAVENTRICULAR EXTRASYSTOLES [None]
  - POISONING [None]
  - PSYCHOMOTOR SEIZURES [None]
